FAERS Safety Report 7469168-7 (Version None)
Quarter: 2011Q2

REPORT INFORMATION
  Report Type: 
  Country: None (occurrence: None)
  Receive Date: 20110429
  Receipt Date: 20110425
  Transmission Date: 20111010
  Serious: Yes (Hospitalization)
  Sender: FDA-Public Use
  Company Number: KV200900427

PATIENT
  Age: 58 Year
  Sex: Female
  Weight: 62.6 kg

DRUGS (11)
  1. PREMARIN [Concomitant]
  2. CLONIDINE [Concomitant]
  3. MORPHINE SULFATE [Suspect]
     Indication: PAIN
     Dosage: 60 MG, BID, ORAL
     Route: 048
     Dates: start: 20071031, end: 20080501
  4. AMLODIPINE [Concomitant]
  5. PROZAC [Concomitant]
  6. RESTORIL [Concomitant]
  7. VICODIN [Concomitant]
  8. LIPITOR [Concomitant]
  9. XANAX [Concomitant]
  10. NAPROXEN [Concomitant]
  11. COREG [Concomitant]

REACTIONS (40)
  - ACUTE STRESS DISORDER [None]
  - HYPOTHYROIDISM [None]
  - CHEST PAIN [None]
  - PRODUCTIVE COUGH [None]
  - DEATH OF RELATIVE [None]
  - ACCIDENTAL OVERDOSE [None]
  - ANXIETY DISORDER [None]
  - ALTERED STATE OF CONSCIOUSNESS [None]
  - CHEST DISCOMFORT [None]
  - TOXICOLOGIC TEST ABNORMAL [None]
  - SINUS BRADYCARDIA [None]
  - SPUTUM DISCOLOURED [None]
  - LETHARGY [None]
  - DYSARTHRIA [None]
  - NAUSEA [None]
  - ABNORMAL BEHAVIOUR [None]
  - PAIN [None]
  - DEHYDRATION [None]
  - HEADACHE [None]
  - PNEUMONIA [None]
  - DEPRESSED MOOD [None]
  - BRONCHITIS CHRONIC [None]
  - CONDITION AGGRAVATED [None]
  - PYREXIA [None]
  - CHILLS [None]
  - NIGHT SWEATS [None]
  - SOMNOLENCE [None]
  - CONFUSIONAL STATE [None]
  - BLOOD PRESSURE INCREASED [None]
  - BRONCHITIS [None]
  - NEPHROLITHIASIS [None]
  - DYSPNOEA [None]
  - OEDEMA PERIPHERAL [None]
  - TACHYCARDIA [None]
  - INCORRECT DOSE ADMINISTERED [None]
  - LOSS OF CONSCIOUSNESS [None]
  - SUICIDE ATTEMPT [None]
  - UNRESPONSIVE TO STIMULI [None]
  - HYPOTENSION [None]
  - WRONG DRUG ADMINISTERED [None]
